FAERS Safety Report 14701411 (Version 2)
Quarter: 2018Q2

REPORT INFORMATION
  Report Type: Spontaneous
  Country: US (occurrence: US)
  Receive Date: 20180330
  Receipt Date: 20180403
  Transmission Date: 20180711
  Serious: No
  Sender: FDA-Public Use
  Company Number: US-PFIZER INC-2018127984

PATIENT
  Age: 90 Year
  Sex: Female
  Weight: 58.96 kg

DRUGS (1)
  1. LYRICA [Suspect]
     Active Substance: PREGABALIN
     Indication: HERPES ZOSTER
     Dosage: UNK
     Dates: start: 201711, end: 201802

REACTIONS (9)
  - Peripheral swelling [Unknown]
  - Blister [Unknown]
  - Musculoskeletal stiffness [Unknown]
  - Nausea [Unknown]
  - Abdominal discomfort [Unknown]
  - Burning sensation [Unknown]
  - Weight decreased [Unknown]
  - Loss of personal independence in daily activities [Unknown]
  - Asthenia [Unknown]
